FAERS Safety Report 7855332-1 (Version None)
Quarter: 2011Q4

REPORT INFORMATION
  Report Type: 
  Country: None (occurrence: None)
  Receive Date: 20111026
  Receipt Date: 20111024
  Transmission Date: 20120403
  Serious: Yes (Hospitalization, Other)
  Sender: FDA-Public Use
  Company Number: BR-ABBOTT-10P-020-0691864-00

PATIENT
  Sex: Female
  Weight: 64 kg

DRUGS (3)
  1. UNKNOWN [Concomitant]
     Indication: THROMBOSIS PROPHYLAXIS
     Dosage: 14 INJECTIONS DURING HOSPITALIZATION
  2. HUMIRA [Suspect]
     Indication: OSTEOPOROSIS
  3. HUMIRA [Suspect]
     Indication: MUSCULOSKELETAL PAIN

REACTIONS (9)
  - OSTEOPOROSIS [None]
  - SUTURE RUPTURE [None]
  - PAIN IN EXTREMITY [None]
  - POSTOPERATIVE WOUND INFECTION [None]
  - BONE EROSION [None]
  - MEDICAL DEVICE COMPLICATION [None]
  - PAIN [None]
  - WOUND DEHISCENCE [None]
  - IMPAIRED HEALING [None]
